FAERS Safety Report 7390648-7 (Version None)
Quarter: 2011Q2

REPORT INFORMATION
  Report Type: 
  Country: None (occurrence: None)
  Receive Date: 20110404
  Receipt Date: 20110323
  Transmission Date: 20111010
  Serious: No
  Sender: FDA-Public Use
  Company Number: US-BIOGENIDEC-2010BI034419

PATIENT
  Sex: Male

DRUGS (1)
  1. TYSABRI [Suspect]
     Indication: MULTIPLE SCLEROSIS
     Route: 042
     Dates: start: 20090728

REACTIONS (7)
  - CENTRAL NERVOUS SYSTEM LESION [None]
  - NUCLEAR MAGNETIC RESONANCE IMAGING ABNORMAL [None]
  - DIZZINESS [None]
  - DYSKINESIA [None]
  - DRUG INEFFECTIVE [None]
  - SPEECH DISORDER [None]
  - DIPLOPIA [None]
